FAERS Safety Report 7530318-5 (Version None)
Quarter: 2011Q2

REPORT INFORMATION
  Report Type: 
  Country: None (occurrence: None)
  Receive Date: 20110531
  Receipt Date: 20110516
  Transmission Date: 20111010
  Serious: Yes (Hospitalization)
  Sender: FDA-Public Use
  Company Number: 2011MA006284

PATIENT
  Age: 75 Year
  Sex: Male

DRUGS (11)
  1. FINASTERIDE [Concomitant]
  2. METOPROLOL TARTRATE [Concomitant]
  3. ALFUZOSIN HCL [Concomitant]
  4. SALURES [Concomitant]
  5. DIAZEPAM [Suspect]
     Dosage: 10 MG, RTL
     Dates: start: 20110125, end: 20110125
  6. PRAMIPEXOLE DIHYCHLLORIDE [Concomitant]
  7. LAMOTRIGINE [Concomitant]
  8. IMPUGAN [Concomitant]
  9. WARAN [Concomitant]
  10. MIDAZOLAM HCL [Suspect]
     Dosage: 10 MG,
     Dates: start: 20110125, end: 20110125
  11. AMLODIPINE [Concomitant]

REACTIONS (3)
  - DEPRESSED LEVEL OF CONSCIOUSNESS [None]
  - APNOEA [None]
  - DRUG INEFFECTIVE [None]
